FAERS Safety Report 9164726 (Version 3)
Quarter: 2013Q3

REPORT INFORMATION
  Report Type: Spontaneous
  Country: FR (occurrence: None)
  Receive Date: 20130226
  Receipt Date: 20130814
  Transmission Date: 20140515
  Serious: Yes (Hospitalization)
  Sender: FDA-Public Use
  Company Number: VAL_01427_2013

PATIENT
  Age: 29 Year
  Sex: Female

DRUGS (2)
  1. PARLODEL [Suspect]
     Indication: LACTATION DISORDER
     Dosage: 1.25MG, [DAY 1] ORAL
     Route: 048
     Dates: start: 20121123, end: 20121123
  2. PARLODEL [Suspect]
     Indication: OFF LABEL USE
     Dosage: 1.25MG, [DAY 1] ORAL
     Route: 048
     Dates: start: 20121123, end: 20121123

REACTIONS (10)
  - Brief psychotic disorder, with postpartum onset [None]
  - Suicidal ideation [None]
  - Sleep disorder [None]
  - Affective disorder [None]
  - Mania [None]
  - Impaired work ability [None]
  - Body dysmorphic disorder [None]
  - Feeling hot [None]
  - Delirium [None]
  - Compulsive shopping [None]
